FAERS Safety Report 21402110 (Version 3)
Quarter: 2023Q1

REPORT INFORMATION
  Report Type: Report from Study
  Country: US (occurrence: US)
  Receive Date: 20221003
  Receipt Date: 20230211
  Transmission Date: 20230417
  Serious: No
  Sender: FDA-Public Use
  Company Number: US-ABBVIE-22K-163-4499679-00

PATIENT
  Age: 91 Year
  Sex: Male

DRUGS (4)
  1. VENCLEXTA [Suspect]
     Active Substance: VENETOCLAX
     Indication: Waldenstrom^s macroglobulinaemia
     Route: 048
  2. VENCLEXTA [Suspect]
     Active Substance: VENETOCLAX
     Indication: Waldenstrom^s macroglobulinaemia
     Dosage: TAKE 2 100 MG TABLETS BY MOUTH EVERY DAY
     Route: 048
  3. VENCLEXTA [Suspect]
     Active Substance: VENETOCLAX
     Indication: Waldenstrom^s macroglobulinaemia
     Dosage: TAKE 2 TABLETS BY MOUTH EVERY DAY
     Route: 048
  4. VENCLEXTA [Suspect]
     Active Substance: VENETOCLAX
     Indication: Waldenstrom^s macroglobulinaemia
     Dosage: 100MG TABLET
     Route: 048

REACTIONS (9)
  - Diarrhoea [Unknown]
  - Off label use [Unknown]
  - Memory impairment [Unknown]
  - Asthenia [Unknown]
  - Fatigue [Unknown]
  - Hypertension [Unknown]
  - Vibrio vulnificus infection [Unknown]
  - Salmonellosis [Unknown]
  - Hypotension [Unknown]

NARRATIVE: CASE EVENT DATE: 20220701
